FAERS Safety Report 6078547-4 (Version None)
Quarter: 2009Q1

REPORT INFORMATION
  Report Type: 
  Country: None (occurrence: None)
  Receive Date: 20090212
  Receipt Date: 20090212
  Transmission Date: 20090719
  Serious: No
  Sender: FDA-Public Use
  Company Number: None

PATIENT
  Sex: Male
  Weight: 183 kg

DRUGS (9)
  1. LISINOPRIL/HYDROCHLOROTHIAZIDE 20MG/25MG [Suspect]
     Dosage: 20-25MG TABLET 1 TAB BID ORAL
     Route: 048
     Dates: start: 20090121, end: 20090211
  2. ASPIRIN [Concomitant]
  3. CEFUROXIME (CEFUROXIME AXETIL) [Concomitant]
  4. CYCLOBENZAPRINE HCL [Concomitant]
  5. DICLOFENAC SODIUM [Concomitant]
  6. ESOMEPRAZOLE MAGNESIUM [Concomitant]
  7. METOPROLOL TARTRATE [Concomitant]
  8. MOMETASONE FUROATE [Concomitant]
  9. ROSUVASTATIN CALCIUM [Concomitant]

REACTIONS (1)
  - COUGH [None]
